FAERS Safety Report 6095074-9 (Version None)
Quarter: 2009Q1

REPORT INFORMATION
  Report Type: 
  Country: None (occurrence: None)
  Receive Date: 20090227
  Receipt Date: 20080128
  Transmission Date: 20090719
  Serious: No
  Sender: FDA-Public Use
  Company Number: A0703003A

PATIENT
  Age: 42 Year
  Sex: Male

DRUGS (3)
  1. LAMICTAL [Suspect]
     Indication: BIPOLAR DISORDER
     Dosage: 50MG PER DAY
     Route: 048
  2. LITHIUM [Concomitant]
  3. ATIVAN [Concomitant]

REACTIONS (2)
  - DERMATITIS ACNEIFORM [None]
  - TINEA CRURIS [None]
